FAERS Safety Report 5794853-2 (Version None)
Quarter: 2008Q2

REPORT INFORMATION
  Report Type: 
  Country: None (occurrence: None)
  Receive Date: 20080630
  Receipt Date: 20080620
  Transmission Date: 20081010
  Serious: Yes (Hospitalization)
  Sender: FDA-Public Use
  Company Number: FR-AVENTIS-200812379FR

PATIENT
  Age: 85 Year
  Sex: Female

DRUGS (13)
  1. LASIX [Suspect]
     Indication: HYPERTENSION
     Route: 048
     Dates: end: 20080211
  2. FOLIC ACID [Suspect]
     Indication: ANAEMIA
     Route: 048
     Dates: start: 20080130, end: 20080214
  3. COVERSYL                           /00790701/ [Suspect]
     Indication: HYPERTENSION
     Route: 048
     Dates: end: 20080210
  4. VENOFER [Suspect]
     Indication: ANAEMIA
     Route: 042
     Dates: start: 20080130, end: 20080211
  5. ROCEPHIN [Concomitant]
     Indication: SUPERINFECTION
     Route: 042
     Dates: start: 20080206, end: 20080217
  6. AVLOCARDYL [Concomitant]
     Indication: HYPERTENSION
     Route: 048
  7. CRESTOR [Concomitant]
     Indication: DYSLIPIDAEMIA
     Route: 048
  8. STILNOX                            /00914901/ [Concomitant]
     Indication: INSOMNIA
     Route: 048
  9. TRANXENE [Concomitant]
     Indication: ANXIETY
     Route: 048
  10. ASCORBIC ACID [Concomitant]
     Indication: VITAMIN C DEFICIENCY
     Route: 048
     Dates: start: 20080131
  11. TARDYFERON                         /00023503/ [Concomitant]
     Indication: ANAEMIA
     Route: 048
  12. POTASSIUM CHLORIDE [Concomitant]
     Indication: HYPOKALAEMIA
     Route: 048
  13. LANTUS [Concomitant]
     Indication: TYPE 2 DIABETES MELLITUS
     Route: 058
     Dates: start: 20080130

REACTIONS (9)
  - ALPHA 1 FOETOPROTEIN INCREASED [None]
  - BRONCHITIS [None]
  - CARBOHYDRATE ANTIGEN 125 INCREASED [None]
  - CARBOHYDRATE ANTIGEN 19-9 INCREASED [None]
  - GENERAL PHYSICAL HEALTH DETERIORATION [None]
  - MULTIPLE MYELOMA [None]
  - PANCYTOPENIA [None]
  - PYELONEPHRITIS [None]
  - RENAL FAILURE [None]
